FAERS Safety Report 5974149-6 (Version None)
Quarter: 2008Q4

REPORT INFORMATION
  Report Type: 
  Country: None (occurrence: None)
  Receive Date: 20081201
  Receipt Date: 20081126
  Transmission Date: 20090506
  Serious: Yes (Hospitalization)
  Sender: FDA-Public Use
  Company Number: DE-PFIZER INC-2006084871

PATIENT
  Sex: Male
  Weight: 77 kg

DRUGS (15)
  1. SU-011,248 [Suspect]
     Indication: METASTATIC RENAL CELL CARCINOMA
     Route: 048
     Dates: start: 20060118, end: 20060215
  2. SU-011,248 [Suspect]
     Route: 048
     Dates: start: 20060524, end: 20060621
  3. DICLOFENAC SODIUM [Concomitant]
     Dates: start: 20060203
  4. BISOPROLOL FUMARATE [Concomitant]
     Dosage: TEXT:UNKNOWN-FREQ:UNKNOWN
     Route: 048
     Dates: start: 20060701
  5. FERROUS SULFATE TAB [Concomitant]
     Dosage: TEXT:UNKNOWN-FREQ:UNKNOWN
     Route: 048
     Dates: start: 20060703
  6. BERLTHYROX [Concomitant]
     Dosage: TEXT:UNKNOWN-FREQ:UNKNOWN
     Route: 048
     Dates: start: 20060331
  7. FUROSEMID [Concomitant]
     Dosage: TEXT:UNKNOWN-FREQ:UNKNOWN
     Route: 042
     Dates: start: 20060703
  8. FUROSEMID [Concomitant]
     Dosage: TEXT:UNKNOWN-FREQ:UNKNOWN
     Route: 048
     Dates: start: 20060703
  9. EMBOLEX [Concomitant]
     Dosage: TEXT:UNKNOWN-FREQ:UNKNOWN
     Route: 058
     Dates: start: 20060703
  10. BISO-PUREN [Concomitant]
     Dates: start: 20050801
  11. MILGAMMA [Concomitant]
     Dates: start: 20050801
  12. SORTIS [Concomitant]
     Dates: start: 20050801
  13. FERRO ^SANOL^ /OLD FORM/ [Concomitant]
     Dates: start: 20051101
  14. OTHER EMOLLIENTS AND PROTECTIVES [Concomitant]
     Dates: start: 20051101
  15. EUTHYROX [Concomitant]
     Dates: start: 20060331

REACTIONS (2)
  - LEFT VENTRICULAR FAILURE [None]
  - PLEURAL EFFUSION [None]
